FAERS Safety Report 10353720 (Version 1)
Quarter: 2014Q3

REPORT INFORMATION
  Report Type: Spontaneous
  Country: US (occurrence: None)
  Receive Date: 20140729
  Receipt Date: 20140729
  Transmission Date: 20150326
  Serious: Yes (Life-Threatening, Hospitalization, Disabling)
  Sender: FDA-Public Use
  Company Number: None

PATIENT
  Age: 46 Year
  Sex: Female
  Weight: 69.4 kg

DRUGS (6)
  1. KEPPRA XR [Suspect]
     Active Substance: LEVETIRACETAM
     Indication: CONVULSION
     Dosage: 1ST 1 PILL 2X DAILY/2ND 2 PILLS 2XDAY/2XDAY BY MOUTH
     Route: 048
     Dates: start: 201010, end: 201307
  2. NAPROXEN. [Concomitant]
     Active Substance: NAPROXEN
  3. NORVASC [Concomitant]
     Active Substance: AMLODIPINE BESYLATE
  4. ADVIL [Concomitant]
     Active Substance: IBUPROFEN
  5. FERROUS SULFATE [Concomitant]
     Active Substance: FERROUS SULFATE\FERROUS SULFATE, DRIED
  6. IBUPROFIN SINUS/ALLERGY [Concomitant]

REACTIONS (11)
  - Paranoia [None]
  - Obsessive-compulsive disorder [None]
  - Dissociation [None]
  - Hallucination [None]
  - Logorrhoea [None]
  - Decreased appetite [None]
  - Personality change [None]
  - Aggression [None]
  - Weight decreased [None]
  - Mania [None]
  - Circadian rhythm sleep disorder [None]

NARRATIVE: CASE EVENT DATE: 20130215
